FAERS Safety Report 15806106 (Version 1)
Quarter: 2019Q1

REPORT INFORMATION
  Report Type: Spontaneous
  Country: US (occurrence: US)
  Receive Date: 20190109
  Receipt Date: 20190109
  Transmission Date: 20190417
  Serious: Yes (Hospitalization)
  Sender: FDA-Public Use
  Company Number: None

PATIENT
  Age: 87 Year
  Sex: Female
  Weight: 65.8 kg

DRUGS (1)
  1. RIVAROXABAN [Suspect]
     Active Substance: RIVAROXABAN
     Route: 048

REACTIONS (6)
  - Neurological decompensation [None]
  - Upper gastrointestinal haemorrhage [None]
  - Anaemia [None]
  - Cerebrovascular accident [None]
  - Haemorrhoids [None]
  - Cerebral thrombosis [None]

NARRATIVE: CASE EVENT DATE: 20181117
